FAERS Safety Report 6209456-5 (Version None)
Quarter: 2009Q2

REPORT INFORMATION
  Report Type: 
  Country: None (occurrence: None)
  Receive Date: 20090601
  Receipt Date: 20090518
  Transmission Date: 20091009
  Serious: Yes (Other)
  Sender: FDA-Public Use
  Company Number: US-ROCHE-634598

PATIENT
  Sex: Female
  Weight: 66.5 kg

DRUGS (1)
  1. CAPECITABINE [Suspect]
     Dosage: FOR 14 DAYS ON 7 DAYS OFF
     Route: 065

REACTIONS (1)
  - MALIGNANT NEOPLASM PROGRESSION [None]
